FAERS Safety Report 7631731-8 (Version None)
Quarter: 2011Q3

REPORT INFORMATION
  Report Type: 
  Country: None (occurrence: None)
  Receive Date: 20110725
  Receipt Date: 20110223
  Transmission Date: 20111222
  Serious: Yes (Other)
  Sender: FDA-Public Use
  Company Number: US-BRISTOL-MYERS SQUIBB COMPANY-15564628

PATIENT
  Age: 65 Year
  Sex: Male
  Weight: 136 kg

DRUGS (5)
  1. LANTUS [Concomitant]
  2. ASPIRIN [Concomitant]
  3. COUMADIN [Suspect]
     Indication: THROMBOSIS
     Dosage: 1DF= 1.5 TABS DAILY OF 5MG TABLET.
  4. DIOVAN [Concomitant]
  5. NOVOLOG [Concomitant]

REACTIONS (9)
  - INTERNATIONAL NORMALISED RATIO FLUCTUATION [None]
  - CONFUSIONAL STATE [None]
  - DIZZINESS [None]
  - ABNORMAL DREAMS [None]
  - ABDOMINAL PAIN UPPER [None]
  - INSOMNIA [None]
  - TINNITUS [None]
  - DYSGEUSIA [None]
  - FEELING COLD [None]
